FAERS Safety Report 24142694 (Version 1)
Quarter: 2024Q3

REPORT INFORMATION
  Report Type: Report from Study
  Country: AR (occurrence: AR)
  Receive Date: 20240726
  Receipt Date: 20240726
  Transmission Date: 20241017
  Serious: Yes (Hospitalization, Other)
  Sender: BIOVITRUM
  Company Number: AR-AstraZeneca-2023A146100

PATIENT
  Sex: Female

DRUGS (1)
  1. SYNAGIS [Suspect]
     Active Substance: PALIVIZUMAB
     Indication: Respiratory syncytial virus infection
     Dosage: 100 MG MONTHLY
     Route: 030
     Dates: start: 20230424

REACTIONS (1)
  - Respiratory disorder [Unknown]
